FAERS Safety Report 9835512 (Version 2)
Quarter: 2014Q1

REPORT INFORMATION
  Report Type: Spontaneous
  Country: US (occurrence: US)
  Receive Date: 20140122
  Receipt Date: 20140122
  Transmission Date: 20141002
  Serious: No
  Sender: FDA-Public Use
  Company Number: US-BRISTOL-MYERS SQUIBB COMPANY-19753573

PATIENT
  Age: 80 Year
  Sex: Male
  Weight: 99.77 kg

DRUGS (1)
  1. ELIQUIS [Suspect]
     Dosage: INTUPD:21JUL13?RESTARTED:2.5MG IN AUG13
     Dates: start: 20130707

REACTIONS (4)
  - Blood urine present [Unknown]
  - Arthritis [Unknown]
  - Chromaturia [Recovered/Resolved]
  - Wrong technique in drug usage process [Unknown]
